FAERS Safety Report 25682052 (Version 6)
Quarter: 2025Q3

REPORT INFORMATION
  Report Type: Report from Study
  Country: US (occurrence: US)
  Receive Date: 20250814
  Receipt Date: 20250924
  Transmission Date: 20251021
  Serious: Yes (Hospitalization, Other)
  Sender: ASTELLAS
  Company Number: US-ASTELLAS-2025-AER-044149

PATIENT
  Age: 84 Year
  Sex: Male

DRUGS (5)
  1. ENZALUTAMIDE [Suspect]
     Active Substance: ENZALUTAMIDE
     Indication: Prostate cancer
     Route: 048
  2. ZOCOR [Concomitant]
     Active Substance: SIMVASTATIN
     Indication: Blood cholesterol increased
     Dosage: DAILY, ONGOING
     Route: 048
  3. Pepscid [Concomitant]
     Indication: Dyspepsia
     Dosage: DAILY, ONGOING
     Route: 048
  4. Pepscid [Concomitant]
     Indication: Abdominal discomfort
  5. LUPRON [Concomitant]
     Active Substance: LEUPROLIDE ACETATE
     Indication: Prostate cancer
     Dosage: ONGOING?Q 6 MONTHS
     Route: 065

REACTIONS (5)
  - Cerebrovascular accident [Recovered/Resolved]
  - Skin cancer [Not Recovered/Not Resolved]
  - Constipation [Not Recovered/Not Resolved]
  - Abdominal pain upper [Not Recovered/Not Resolved]
  - Nausea [Not Recovered/Not Resolved]

NARRATIVE: CASE EVENT DATE: 20250413
